FAERS Safety Report 8800784 (Version 2)
Quarter: 2015Q1

REPORT INFORMATION
  Report Type: Report from Study
  Country: US (occurrence: US)
  Receive Date: 20120920
  Receipt Date: 20150303
  Transmission Date: 20150721
  Serious: Yes (Death)
  Sender: FDA-Public Use
  Company Number: US-ROCHE-1103483

PATIENT
  Age: 58 Year
  Sex: Male

DRUGS (8)
  1. BENADRYL [Concomitant]
     Active Substance: DIPHENHYDRAMINE HYDROCHLORIDE
     Route: 042
  2. FILGRASTIM [Concomitant]
     Active Substance: FILGRASTIM
     Route: 058
  3. ZOMETA [Concomitant]
     Active Substance: ZOLEDRONIC ACID
     Route: 042
  4. DECADRON [Concomitant]
     Active Substance: DEXAMETHASONE
     Route: 042
  5. CARBOPLATIN. [Concomitant]
     Active Substance: CARBOPLATIN
     Route: 042
  6. AVASTIN [Suspect]
     Active Substance: BEVACIZUMAB
     Indication: LUNG NEOPLASM MALIGNANT
     Route: 042
     Dates: start: 20080131, end: 20080228
  7. AVASTIN [Suspect]
     Active Substance: BEVACIZUMAB
     Indication: BONE CANCER
  8. TAXOL [Concomitant]
     Active Substance: PACLITAXEL
     Route: 042

REACTIONS (2)
  - Erythema [Unknown]
  - Death [Fatal]

NARRATIVE: CASE EVENT DATE: 20080315
